FAERS Safety Report 8353160-4 (Version None)
Quarter: 2012Q2

REPORT INFORMATION
  Report Type: 
  Country: None (occurrence: None)
  Receive Date: 20120511
  Receipt Date: 20120508
  Transmission Date: 20120825
  Serious: Yes (Hospitalization, Congenital Anomaly, Other)
  Sender: FDA-Public Use
  Company Number: US-PFIZER INC-2011285840

PATIENT
  Sex: Female
  Weight: 2.7 kg

DRUGS (13)
  1. FERROUS SULFATE [Concomitant]
     Dosage: 325 MG DAILY
     Route: 064
  2. TYLENOL (CAPLET) [Concomitant]
     Indication: PAIN
     Dosage: 1000 MG, 4X/DAY
     Route: 064
  3. METRONIDAZOLE [Concomitant]
     Dosage: 500 MG, 2X/DAY
     Route: 064
  4. FOLIC ACID [Concomitant]
     Dosage: 1 MG DAILY
     Route: 064
  5. MULTI-VITAMINS [Concomitant]
     Dosage: DAILY
     Route: 064
  6. DIFLUCAN [Concomitant]
     Dosage: 150 MG, UNK
     Route: 064
     Dates: start: 20020525
  7. BUSPAR [Concomitant]
     Dosage: 7.5 MG, 2X/DAY
     Route: 064
  8. CELEXA [Concomitant]
     Dosage: 10 MG DAILY
     Route: 064
  9. CALCIUM [Concomitant]
     Dosage: 600 MG, 2X/DAY
     Route: 064
  10. KEFLEX [Concomitant]
     Dosage: 500 MG, 4X/DAY
     Route: 064
  11. ZOLOFT [Suspect]
     Dosage: 50 MG DAILY
     Route: 064
     Dates: start: 20011129
  12. TERAZOL 7 [Concomitant]
     Dosage: UNK
     Route: 064
     Dates: start: 20020522
  13. POTASSIUM CHLORIDE [Concomitant]
     Dosage: UNK
     Route: 064
     Dates: start: 20020807

REACTIONS (4)
  - RESPIRATORY DISORDER NEONATAL [None]
  - CONGENITAL NAEVUS [None]
  - MATERNAL EXPOSURE TIMING UNSPECIFIED [None]
  - CARDIAC MURMUR [None]
